FAERS Safety Report 18927788 (Version 1)
Quarter: 2021Q1

REPORT INFORMATION
  Report Type: Spontaneous
  Country: US (occurrence: US)
  Receive Date: 20210223
  Receipt Date: 20210223
  Transmission Date: 20210420
  Serious: No
  Sender: FDA-Public Use
  Company Number: US-FERRINGPH-2020FE06292

PATIENT

DRUGS (1)
  1. DDAVP [Suspect]
     Active Substance: DESMOPRESSIN ACETATE
     Indication: PRODUCT USED FOR UNKNOWN INDICATION
     Dosage: 1 UG
     Route: 065
     Dates: end: 20200813

REACTIONS (5)
  - Lethargy [Unknown]
  - Headache [Unknown]
  - Out of specification product use [Recovered/Resolved]
  - Recalled product administered [Recovered/Resolved]
  - Nausea [Unknown]
